FAERS Safety Report 7209811-0 (Version None)
Quarter: 2011Q1

REPORT INFORMATION
  Report Type: 
  Country: None (occurrence: None)
  Receive Date: 20110104
  Receipt Date: 20101214
  Transmission Date: 20110831
  Serious: Yes (Hospitalization)
  Sender: FDA-Public Use
  Company Number: DE-AMGEN-DEUCT2010001699

PATIENT

DRUGS (2)
  1. ETANERCEPT [Suspect]
  2. PSORCUTAN [Concomitant]
     Dosage: UNKNOWN
     Route: 065

REACTIONS (1)
  - ANAL FISTULA [None]
